FAERS Safety Report 6212479-3 (Version None)
Quarter: 2009Q2

REPORT INFORMATION
  Report Type: 
  Country: None (occurrence: None)
  Receive Date: 20090603
  Receipt Date: 20090525
  Transmission Date: 20091009
  Serious: Yes (Hospitalization)
  Sender: FDA-Public Use
  Company Number: JP-JNJFOC-20090304902

PATIENT
  Sex: Female
  Weight: 44 kg

DRUGS (2)
  1. REMICADE [Suspect]
     Indication: CROHN'S DISEASE
     Route: 042
  2. STEROIDS [Concomitant]
     Route: 065

REACTIONS (3)
  - DRUG ERUPTION [None]
  - ECZEMA [None]
  - PYREXIA [None]
